FAERS Safety Report 8341885-6 (Version None)
Quarter: 2012Q2

REPORT INFORMATION
  Report Type: 
  Country: None (occurrence: None)
  Receive Date: 20120507
  Receipt Date: 20120430
  Transmission Date: 20120825
  Serious: Yes (Other)
  Sender: FDA-Public Use
  Company Number: US-ELI_LILLY_AND_COMPANY-US201205000619

PATIENT
  Sex: Male

DRUGS (4)
  1. HUMALOG [Suspect]
     Indication: DIABETES MELLITUS
     Dosage: 15 U, TID
  2. HUMALOG [Suspect]
     Dosage: UNK, PRN
  3. HUMALOG [Suspect]
     Dosage: 15 U, TID
  4. HUMALOG [Suspect]
     Dosage: UNK UNK, PRN

REACTIONS (1)
  - LETHARGY [None]
